FAERS Safety Report 21697778 (Version 3)
Quarter: 2024Q1

REPORT INFORMATION
  Report Type: Report from Study
  Country: US (occurrence: US)
  Receive Date: 20221208
  Receipt Date: 20240318
  Transmission Date: 20240409
  Serious: Yes (Hospitalization, Other)
  Sender: FDA-Public Use
  Company Number: US-ABBVIE-4226690

PATIENT
  Age: 79 Year
  Sex: Female

DRUGS (1)
  1. IMBRUVICA [Suspect]
     Active Substance: IBRUTINIB
     Indication: Chronic lymphocytic leukaemia (in remission)
     Route: 048
     Dates: start: 202201

REACTIONS (13)
  - Fall [Unknown]
  - Haemorrhage [Unknown]
  - Skin laceration [Not Recovered/Not Resolved]
  - Joint swelling [Unknown]
  - Fall [Unknown]
  - Haemoglobin increased [Unknown]
  - Erythema [Unknown]
  - Periorbital swelling [Unknown]
  - Myocardial injury [Unknown]
  - Traumatic lung injury [Unknown]
  - Blood sodium decreased [Unknown]
  - Pain [Recovered/Resolved]
  - White blood cell count abnormal [Unknown]

NARRATIVE: CASE EVENT DATE: 20240212
